FAERS Safety Report 8883657 (Version 1)
Quarter: 2012Q4

REPORT INFORMATION
  Report Type: 
  Country: CA (occurrence: CA)
  Receive Date: 20121102
  Receipt Date: 20121102
  Transmission Date: 20130627
  Serious: Yes (Other)
  Sender: FDA-Public Use
  Company Number: CA-PFIZER INC-2005059643

PATIENT
  Age: 22 Year
  Sex: Female
  Weight: 61 kg

DRUGS (1)
  1. BEXTRA [Suspect]
     Indication: WHIPLASH INJURY
     Dosage: 20 mg, 2x/day
     Route: 048
     Dates: start: 200405, end: 200408

REACTIONS (1)
  - Stevens-Johnson syndrome [Unknown]
